FAERS Safety Report 19030557 (Version 1)
Quarter: 2021Q1

REPORT INFORMATION
  Report Type: Report from Study
  Country: JP (occurrence: JP)
  Receive Date: 20210319
  Receipt Date: 20210319
  Transmission Date: 20210420
  Serious: Yes (Hospitalization)
  Sender: FDA-Public Use
  Company Number: NVSC2020JP286714

PATIENT
  Age: 52 Year
  Sex: Male
  Weight: 61.6 kg

DRUGS (35)
  1. MYCOPHENOLATE MOFETIL. [Suspect]
     Active Substance: MYCOPHENOLATE MOFETIL
     Indication: RENAL TRANSPLANT
     Dosage: 500 MG, BID
     Route: 048
     Dates: start: 20200908
  2. PREGABALIN. [Concomitant]
     Active Substance: PREGABALIN
     Indication: MYELOPATHY
     Dosage: UNK
     Route: 065
     Dates: start: 20191218, end: 20210302
  3. SILODOSIN. [Concomitant]
     Active Substance: SILODOSIN
     Indication: DIURETIC THERAPY
     Dosage: UNK
     Route: 065
     Dates: start: 20201114, end: 20201115
  4. AZELNIDIPINE [Concomitant]
     Active Substance: AZELNIDIPINE
     Indication: HYPERTENSION
     Dosage: UNK
     Route: 065
     Dates: start: 20190627, end: 20201207
  5. SODIUM AZULENE SULFONATE L?GLUTAMINE COMB. [Concomitant]
     Active Substance: GLUTAMINE\SODIUM GUALENATE
     Indication: CHRONIC GASTRITIS
     Dosage: UNK
     Route: 065
     Dates: start: 20200617, end: 20201127
  6. SODIUM AZULENESULFONATE HYDRATE , L?GLUTAMINE [Concomitant]
     Indication: PYELONEPHRITIS
     Route: 065
     Dates: start: 20200226
  7. CILNIDIPINE [Concomitant]
     Active Substance: CILNIDIPINE
     Indication: HYPERTENSION
     Dosage: UNK
     Route: 065
     Dates: start: 20190710, end: 20201113
  8. SODIUM AZULENESULFONATE HYDRATE , L?GLUTAMINE [Concomitant]
     Route: 065
     Dates: start: 20201114, end: 20201117
  9. SODIUM AZULENESULFONATE HYDRATE , L?GLUTAMINE [Concomitant]
     Route: 065
     Dates: start: 20201030, end: 20201102
  10. DIPYRIDAMOLE. [Concomitant]
     Active Substance: DIPYRIDAMOLE
     Indication: HYPERTENSION
     Dosage: UNK
     Route: 065
     Dates: start: 20190531
  11. REBAMIPIDE [Concomitant]
     Active Substance: REBAMIPIDE
     Indication: PROPHYLAXIS
     Dosage: UNK
     Route: 065
     Dates: start: 20201024, end: 20201102
  12. AMLODIPINE BESILATE [Concomitant]
     Active Substance: AMLODIPINE BESYLATE
     Indication: HYPERTENSION
     Dosage: UNK
     Route: 065
     Dates: start: 20190731
  13. SODIUM AZULENESULFONATE HYDRATE , L?GLUTAMINE [Concomitant]
     Indication: CHRONIC GASTRITIS
     Route: 065
     Dates: start: 20201023, end: 20201023
  14. SODIUM AZULENESULFONATE HYDRATE , L?GLUTAMINE [Concomitant]
     Route: 065
     Dates: start: 20201114, end: 20201115
  15. SODIUM AZULENESULFONATE HYDRATE , L?GLUTAMINE [Concomitant]
     Route: 065
     Dates: start: 20190531, end: 20201228
  16. SODIUM AZULENESULFONATE HYDRATE , L?GLUTAMINE [Concomitant]
     Indication: HYPERTENSION
     Route: 065
     Dates: start: 20201024, end: 20201029
  17. SODIUM AZULENESULFONATE HYDRATE , L?GLUTAMINE [Concomitant]
     Route: 065
     Dates: start: 20201113
  18. SODIUM AZULENESULFONATE HYDRATE , L?GLUTAMINE [Concomitant]
     Route: 065
     Dates: start: 20201117, end: 20201124
  19. SODIUM AZULENESULFONATE HYDRATE , L?GLUTAMINE [Concomitant]
     Route: 065
     Dates: start: 20201116, end: 20201125
  20. SODIUM AZULENESULFONATE HYDRATE , L?GLUTAMINE [Concomitant]
     Route: 065
     Dates: start: 20200617, end: 20201127
  21. CFZ533SC [Suspect]
     Active Substance: ISCALIMAB
     Indication: RENAL TRANSPLANT
     Dosage: 450 MG, Q2W
     Route: 058
     Dates: start: 20200908
  22. METHYLPREDNISOLONE. [Suspect]
     Active Substance: METHYLPREDNISOLONE
     Indication: PROPHYLAXIS AGAINST TRANSPLANT REJECTION
     Dosage: UNK
     Route: 065
     Dates: start: 20200226
  23. DOXAZOSIN MESILATE [Concomitant]
     Active Substance: DOXAZOSIN MESYLATE
     Dosage: UNK
     Route: 065
     Dates: start: 20201117, end: 20210201
  24. TAMSULOSIN HYDROCHLORIDE. [Concomitant]
     Active Substance: TAMSULOSIN HYDROCHLORIDE
     Indication: POLYURIA
     Dosage: UNK
     Route: 065
     Dates: start: 20201116, end: 20201125
  25. BUNAZOSIN HYDROCHLORIDE [Concomitant]
     Active Substance: BUNAZOSIN HYDROCHLORIDE
     Indication: HYPERTENSION
     Dosage: UNK
     Route: 065
     Dates: start: 20190626, end: 20201127
  26. BUTYRIC ACID [Concomitant]
     Active Substance: BUTYRIC ACID
     Indication: CHRONIC GASTRITIS
     Dosage: UNK
     Route: 065
     Dates: start: 20190531, end: 20201228
  27. SODIUM AZULENESULFONATE HYDRATE , L?GLUTAMINE [Concomitant]
     Indication: POLYURIA
     Dosage: UNK
     Route: 065
     Dates: start: 20201114, end: 20201115
  28. CILNIDIPINE [Concomitant]
     Active Substance: CILNIDIPINE
     Dosage: UNK
     Route: 065
     Dates: start: 20201114
  29. SODIUM AZULENESULFONATE HYDRATE , L?GLUTAMINE [Concomitant]
     Route: 065
     Dates: start: 20201115, end: 20201115
  30. SODIUM AZULENESULFONATE HYDRATE , L?GLUTAMINE [Concomitant]
     Route: 065
     Dates: start: 20190710, end: 20201113
  31. DOXAZOSIN MESILATE [Concomitant]
     Active Substance: DOXAZOSIN MESYLATE
     Indication: HYPERTENSION
     Dosage: UNK
     Route: 065
     Dates: start: 20201024, end: 20201102
  32. URSODEOXYCHOLIC ACID [Concomitant]
     Active Substance: URSODIOL
     Indication: ALCOHOLIC LIVER DISEASE
     Dosage: UNK
     Route: 065
     Dates: start: 20190531
  33. SODIUM AZULENESULFONATE HYDRATE , L?GLUTAMINE [Concomitant]
     Indication: MYELOPATHY
     Route: 065
     Dates: start: 20201023, end: 20201024
  34. TACROLIMUS. [Suspect]
     Active Substance: TACROLIMUS
     Indication: RENAL TRANSPLANT
     Dosage: UNK
     Route: 048
     Dates: start: 20200908
  35. REBAMIPIDE [Concomitant]
     Active Substance: REBAMIPIDE
     Indication: CHRONIC GASTRITIS
     Dosage: UNK
     Route: 065
     Dates: start: 20201117, end: 20201125

REACTIONS (2)
  - Pyelonephritis [Recovered/Resolved]
  - Pyelonephritis acute [Recovered/Resolved]

NARRATIVE: CASE EVENT DATE: 20201023
